FAERS Safety Report 9337286 (Version 5)
Quarter: 2013Q4

REPORT INFORMATION
  Report Type: Spontaneous
  Country: US (occurrence: US)
  Receive Date: 20130607
  Receipt Date: 20131119
  Transmission Date: 20140711
  Serious: Yes (Hospitalization, Other)
  Sender: FDA-Public Use
  Company Number: US-UCBSA-087333

PATIENT
  Age: 48 Year
  Sex: Male

DRUGS (2)
  1. CIMZIA [Suspect]
     Indication: CROHN^S DISEASE
     Dates: start: 20090122, end: 2009
  2. CIMZIA [Suspect]
     Indication: CROHN^S DISEASE
     Dates: start: 20090611

REACTIONS (4)
  - Exploratory operation [Unknown]
  - Gastrointestinal stoma complication [Recovered/Resolved]
  - Post procedural infection [Not Recovered/Not Resolved]
  - Inappropriate schedule of drug administration [Unknown]
